FAERS Safety Report 15745408 (Version 1)
Quarter: 2018Q4

REPORT INFORMATION
  Report Type: Spontaneous
  Country: IT (occurrence: IT)
  Receive Date: 20181220
  Receipt Date: 20181220
  Transmission Date: 20190205
  Serious: Yes (Other)
  Sender: FDA-Public Use
  Company Number: IT-GLAXOSMITHKLINE-IT2018229045

PATIENT
  Age: 55 Year
  Sex: Female

DRUGS (1)
  1. ACITRETIN. [Suspect]
     Active Substance: ACITRETIN
     Indication: PALMOPLANTAR KERATODERMA
     Dosage: 25 MG, QD
     Route: 065

REACTIONS (6)
  - Mucosal dryness [Recovered/Resolved]
  - Pain [Recovered/Resolved]
  - Palmoplantar keratoderma [Recovered/Resolved]
  - Loss of personal independence in daily activities [Recovered/Resolved]
  - Condition aggravated [Recovered/Resolved]
  - Alopecia [Recovered/Resolved]
